FAERS Safety Report 23886361 (Version 1)
Quarter: 2024Q2

REPORT INFORMATION
  Report Type: Spontaneous
  Country: CA (occurrence: CA)
  Receive Date: 20240522
  Receipt Date: 20240522
  Transmission Date: 20240716
  Serious: Yes (Hospitalization, Other)
  Sender: FDA-Public Use
  Company Number: CA-OTSUKA-2024_000282

PATIENT
  Sex: Male

DRUGS (2)
  1. ABILIFY MAINTENA [Suspect]
     Active Substance: ARIPIPRAZOLE
     Indication: Schizophrenia
     Dosage: 400 MG
     Route: 065
     Dates: start: 2021
  2. ABILIFY [Suspect]
     Active Substance: ARIPIPRAZOLE
     Indication: Schizophrenia
     Dosage: 15 MG
     Route: 065

REACTIONS (8)
  - Aggression [Unknown]
  - Injection site pain [Unknown]
  - Syncope [Unknown]
  - Fatigue [Unknown]
  - Anxiety [Unknown]
  - Imprisonment [Unknown]
  - Product administered at inappropriate site [Unknown]
  - Thinking abnormal [Unknown]
